FAERS Safety Report 4946801-2 (Version None)
Quarter: 2006Q1

REPORT INFORMATION
  Report Type: 
  Country: None (occurrence: None)
  Receive Date: 20060317
  Receipt Date: 20060208
  Transmission Date: 20060701
  Serious: Yes (Hospitalization, Disabling, Other)
  Sender: FDA-Public Use
  Company Number: US-MERCK-0602USA02294

PATIENT
  Age: 59 Year
  Sex: Female
  Weight: 85 kg

DRUGS (7)
  1. VIOXX [Suspect]
     Indication: ARTHRITIS
     Route: 048
     Dates: start: 20010101, end: 20040413
  2. LOTREL [Concomitant]
     Route: 065
  3. EFFEXOR [Concomitant]
     Route: 065
  4. LEVOTHROID [Concomitant]
     Route: 065
  5. ZYRTEC [Concomitant]
     Route: 065
  6. SINGULAIR [Concomitant]
     Route: 065
  7. CELEBREX [Concomitant]
     Route: 065

REACTIONS (3)
  - ARTERIAL DISORDER [None]
  - CEREBROVASCULAR ACCIDENT [None]
  - VISUAL ACUITY REDUCED [None]
